FAERS Safety Report 7029466-8 (Version None)
Quarter: 2010Q4

REPORT INFORMATION
  Report Type: 
  Country: None (occurrence: None)
  Receive Date: 20101005
  Receipt Date: 20101001
  Transmission Date: 20110411
  Serious: Yes (Hospitalization)
  Sender: FDA-Public Use
  Company Number: IT-WYE-G06755410

PATIENT
  Sex: Female

DRUGS (12)
  1. TAZOCIN [Suspect]
     Indication: PNEUMONITIS
     Route: 042
     Dates: start: 20100927, end: 20100929
  2. OMEPRAZOLE [Concomitant]
     Dosage: 1 DOSE
     Route: 048
  3. ISOSORBIDE MONONITRATE [Concomitant]
     Dosage: 1 DOSE
     Route: 048
  4. INSULIN HUMAN [Concomitant]
     Dosage: NOT PROVIDED
     Dates: start: 20090101
  5. LASIX [Concomitant]
     Dosage: 25 MG
     Route: 048
  6. GLIMEPIRIDE [Concomitant]
  7. LANTUS [Concomitant]
  8. LYRICA [Concomitant]
  9. ENAPREN [Concomitant]
     Dosage: 20 MG
     Route: 048
  10. CARDIOASPIRIN [Concomitant]
     Dosage: 100 MG
     Route: 048
  11. METFORMIN [Concomitant]
     Dosage: 300 MG
     Route: 048
  12. CLEXANE [Concomitant]
     Dosage: NOT PROVIDED
     Dates: start: 20100922, end: 20100929

REACTIONS (2)
  - CONDITION AGGRAVATED [None]
  - RENAL FAILURE CHRONIC [None]
